FAERS Safety Report 17798179 (Version 3)
Quarter: 2020Q2

REPORT INFORMATION
  Report Type: Report from Study
  Country: None (occurrence: US)
  Receive Date: 20200518
  Receipt Date: 20200610
  Transmission Date: 20200714
  Serious: Yes (Hospitalization)
  Sender: FDA-Public Use
  Company Number: US-BIOVITRUM-2020US2304

PATIENT
  Age: 17 Year
  Sex: Female

DRUGS (2)
  1. KINERET [Suspect]
     Active Substance: ANAKINRA
     Route: 058
  2. KINERET [Suspect]
     Active Substance: ANAKINRA
     Indication: POLYARTHRITIS
     Route: 058
     Dates: start: 20190906

REACTIONS (5)
  - Abscess [Unknown]
  - Arthritis [Unknown]
  - Rash [Unknown]
  - Off label use [Unknown]
  - Intentional product misuse [Unknown]

NARRATIVE: CASE EVENT DATE: 20190906
